FAERS Safety Report 6686683-4 (Version None)
Quarter: 2010Q2

REPORT INFORMATION
  Report Type: 
  Country: None (occurrence: None)
  Receive Date: 20100416
  Receipt Date: 20100416
  Transmission Date: 20101027
  Serious: Yes (Other)
  Sender: FDA-Public Use
  Company Number: None

PATIENT
  Age: 45 Year
  Sex: Female

DRUGS (2)
  1. ZOLPIDEM [Suspect]
     Indication: BIPOLAR II DISORDER
     Dosage: 10 MG 1 @ HS ORAL
     Route: 048
  2. ZOLPIDEM [Suspect]
     Indication: INSOMNIA
     Dosage: 10 MG 1 @ HS ORAL
     Route: 048

REACTIONS (2)
  - NAUSEA [None]
  - VOMITING [None]
